FAERS Safety Report 7145761-6 (Version None)
Quarter: 2010Q4

REPORT INFORMATION
  Report Type: 
  Country: None (occurrence: None)
  Receive Date: 20101208
  Receipt Date: 20101124
  Transmission Date: 20110411
  Serious: Yes (Hospitalization, Congenital Anomaly)
  Sender: FDA-Public Use
  Company Number: A0748199A

PATIENT
  Sex: Female

DRUGS (12)
  1. PAXIL [Suspect]
     Indication: ANXIETY
     Dosage: 20MG UNKNOWN
  2. ALDOMET [Concomitant]
     Indication: HYPERTENSION
     Dosage: 250MG TWICE PER DAY
  3. PERCOCET [Concomitant]
  4. INDERAL [Concomitant]
  5. MACROBID [Concomitant]
  6. VERAPAMIL ER [Concomitant]
     Dosage: 120MG PER DAY
  7. AMOXICILLIN [Concomitant]
  8. ZITHROMAX [Concomitant]
  9. PRENATAL VITAMINS [Concomitant]
  10. FLONASE [Concomitant]
  11. METHYLDOPA [Concomitant]
  12. PROMETHAZINE [Concomitant]

REACTIONS (6)
  - ASTHMA [None]
  - BRONCHITIS [None]
  - CARDIAC MURMUR [None]
  - DRUG EXPOSURE DURING PREGNANCY [None]
  - MULTIPLE CONGENITAL ABNORMALITIES [None]
  - SPEECH DISORDER DEVELOPMENTAL [None]
